FAERS Safety Report 14211587 (Version 1)
Quarter: 2017Q4

REPORT INFORMATION
  Report Type: Spontaneous
  Country: US (occurrence: None)
  Receive Date: 20171121
  Receipt Date: 20171121
  Transmission Date: 20180321
  Serious: Yes (Death)
  Sender: FDA-Public Use
  Company Number: None

PATIENT
  Age: 63 Year
  Sex: Male
  Weight: 65.77 kg

DRUGS (2)
  1. TAXUS PACLITAXEL-ELUTING CORONARY STENT SYSTEM [Concomitant]
  2. EFFIENT [Suspect]
     Active Substance: PRASUGREL HYDROCHLORIDE
     Indication: ANGIOPLASTY

REACTIONS (3)
  - Pain [None]
  - Platelet disorder [None]
  - Pancreatic carcinoma [None]

NARRATIVE: CASE EVENT DATE: 20161019
